FAERS Safety Report 4906126-8 (Version None)
Quarter: 2006Q1

REPORT INFORMATION
  Report Type: 
  Country: None (occurrence: None)
  Receive Date: 20060207
  Receipt Date: 20060207
  Transmission Date: 20060701
  Serious: Yes (Hospitalization, Other)
  Sender: FDA-Public Use
  Company Number: None

PATIENT
  Sex: Female
  Weight: 84.32 kg

DRUGS (13)
  1. IRINOTECAN HCL [Suspect]
     Indication: GLIOBLASTOMA MULTIFORME
     Dosage: 362 MG
     Dates: start: 20060123, end: 20060123
  2. IRINOTECAN HCL [Suspect]
     Indication: GLIOBLASTOMA MULTIFORME
     Dosage: 362 MG
     Dates: start: 20060125
  3. TEMOZOLOMIDE [Suspect]
     Dosage: 180 MG
     Route: 048
     Dates: start: 20060125
  4. DEXAMETHASONE [Concomitant]
  5. DIFLUCAN [Concomitant]
  6. KEPPRA [Concomitant]
  7. SYNTHROID [Concomitant]
  8. TOPROL [Concomitant]
  9. ZOFRAN [Concomitant]
  10. COUMADIN [Concomitant]
  11. LEXAPRO [Concomitant]
  12. VANCOMYCIN [Concomitant]
  13. ZOSYN [Concomitant]

REACTIONS (3)
  - BODY TEMPERATURE INCREASED [None]
  - PNEUMONIA [None]
  - PULMONARY EMBOLISM [None]
